FAERS Safety Report 10077368 (Version 2)
Quarter: 2014Q2

REPORT INFORMATION
  Report Type: Spontaneous
  Country: US (occurrence: US)
  Receive Date: 20140414
  Receipt Date: 20140414
  Transmission Date: 20141212
  Serious: No
  Sender: FDA-Public Use
  Company Number: US-BANPHARM-20131415

PATIENT
  Age: 38 Year
  Sex: Female
  Weight: 52.16 kg

DRUGS (2)
  1. ALEVE LIQUID GELS 220 MG [Suspect]
     Indication: PAIN
     Dosage: 2 DF, ONCE,
     Route: 048
     Dates: start: 20130601, end: 20130601
  2. IBUPROFEN [Concomitant]

REACTIONS (2)
  - Drug ineffective [Unknown]
  - Therapeutic response changed [Unknown]
